FAERS Safety Report 8106210-4 (Version None)
Quarter: 2012Q1

REPORT INFORMATION
  Report Type: 
  Country: None (occurrence: None)
  Receive Date: 20120130
  Receipt Date: 20120124
  Transmission Date: 20120608
  Serious: Yes (Other)
  Sender: FDA-Public Use
  Company Number: 2012SP004197

PATIENT
  Age: 58 Year
  Sex: Female

DRUGS (7)
  1. VICTRELIS [Suspect]
     Indication: HEPATITIS C
     Dosage: 2400 MG, QD, PO
     Route: 048
     Dates: start: 20110828, end: 20111207
  2. TISACID [Concomitant]
  3. TRILAC [Concomitant]
  4. FRONTIN [Concomitant]
  5. REBETOL [Suspect]
     Indication: HEPATITIS C
     Dosage: 1000 MG, QD, PO
     Route: 048
     Dates: start: 20110830, end: 20111207
  6. PEG-INTRON [Suspect]
     Indication: HEPATITIS C
     Dosage: 120 MCG, QW, SC
     Route: 058
     Dates: start: 20110830, end: 20111207
  7. CONTRAL [Concomitant]

REACTIONS (2)
  - UNEVALUABLE EVENT [None]
  - ASPHYXIA [None]
